FAERS Safety Report 9784043 (Version 4)
Quarter: 2014Q2

REPORT INFORMATION
  Report Type: Report from Study
  Country: JP (occurrence: JP)
  Receive Date: 20131226
  Receipt Date: 20140526
  Transmission Date: 20141212
  Serious: Yes (Death, Life-Threatening, Hospitalization)
  Sender: FDA-Public Use
  Company Number: JP-009507513-1312JPN010232

PATIENT
  Age: 47 Year
  Sex: Male
  Weight: 52 kg

DRUGS (13)
  1. CANCIDAS FOR INTRAVENOUS DRIP INFUSION 50MG [Suspect]
     Indication: FEBRILE NEUTROPENIA
     Dosage: 50 MG, QD
     Route: 041
     Dates: start: 20131127, end: 20131211
  2. CANCIDAS FOR INTRAVENOUS DRIP INFUSION 70MG [Suspect]
     Indication: FEBRILE NEUTROPENIA
     Dosage: 70 MG, QD
     Route: 041
     Dates: start: 20131126, end: 20131126
  3. LASIX (FUROSEMIDE) [Suspect]
     Dosage: DAILY DOSE UNKNOWN
     Route: 065
  4. MICAFUNGIN SODIUM [Concomitant]
     Indication: FEBRILE NEUTROPENIA
     Dosage: 50 MG, DIVIDED DOSE, FREQUENCY UNKNOWN.
     Route: 041
     Dates: start: 20131111, end: 20131120
  5. AMPHOTERICIN B [Concomitant]
     Indication: FEBRILE NEUTROPENIA
     Dosage: 150MG DIVIDED DOSE, FREQUENCY UNKNOWN
     Route: 041
     Dates: start: 20131121, end: 20131125
  6. ITRACONAZOLE [Concomitant]
     Indication: FEBRILE NEUTROPENIA
     Dosage: 400 MG DAILY, DIVIDED DOSE FREQUENCY UNKNOWN; FORM: POR
     Route: 048
     Dates: start: 20131106, end: 20131110
  7. ITRACONAZOLE [Concomitant]
     Indication: SYSTEMIC CANDIDA
  8. MEROPEN [Concomitant]
     Indication: FEBRILE NEUTROPENIA
     Dosage: 1 G, TID
     Route: 051
     Dates: start: 20131122, end: 20131203
  9. TARGOCID [Concomitant]
     Indication: BACTERAEMIA
     Dosage: 400 MG, QD
     Route: 051
     Dates: start: 20131113, end: 20131211
  10. PREDONINE [Concomitant]
     Indication: IMMUNISATION REACTION
     Dosage: 4 MG, BID
     Route: 048
     Dates: start: 20131012, end: 20131129
  11. GLOVENIN [Concomitant]
     Indication: INFECTION
     Dosage: 5 G, QD
     Route: 051
     Dates: start: 20131124, end: 20131126
  12. PROGRAF [Concomitant]
     Indication: PROPHYLAXIS AGAINST GRAFT VERSUS HOST DISEASE
     Dosage: 1 MG, QD
     Route: 051
     Dates: start: 20130925, end: 20131127
  13. TAKEPRON [Concomitant]
     Indication: GASTRIC ULCER
     Dosage: 15 MG, QD
     Route: 048
     Dates: start: 20131013, end: 20131211

REACTIONS (5)
  - Hypokalaemia [Recovered/Resolved]
  - Multi-organ failure [Fatal]
  - Myelodysplastic syndrome [Fatal]
  - Febrile neutropenia [Not Recovered/Not Resolved]
  - Immunisation reaction [Recovering/Resolving]
